FAERS Safety Report 14001434 (Version 2)
Quarter: 2018Q2

REPORT INFORMATION
  Report Type: Spontaneous
  Country: FR (occurrence: FR)
  Receive Date: 20170922
  Receipt Date: 20180412
  Transmission Date: 20180711
  Serious: Yes (Other)
  Sender: FDA-Public Use
  Company Number: FR-MERCK KGAA-2027371

PATIENT
  Age: 40 Year
  Sex: Female
  Weight: 50 kg

DRUGS (1)
  1. NOVOTHYROX [Suspect]
     Active Substance: LEVOTHYROXINE SODIUM
     Indication: AUTOIMMUNE THYROIDITIS
     Route: 048
     Dates: start: 20170722

REACTIONS (12)
  - Weight decreased [Unknown]
  - Constipation [Unknown]
  - Vertigo [Unknown]
  - Subileus [Unknown]
  - Feeling cold [Unknown]
  - Vomiting [Unknown]
  - Affective disorder [Unknown]
  - Muscle spasms [Unknown]
  - Blood thyroid stimulating hormone increased [Unknown]
  - Fatigue [Unknown]
  - Dry skin [Unknown]
  - Balance disorder [Unknown]

NARRATIVE: CASE EVENT DATE: 20170723
